FAERS Safety Report 7879760-3 (Version None)
Quarter: 2011Q4

REPORT INFORMATION
  Report Type: 
  Country: None (occurrence: None)
  Receive Date: 20111101
  Receipt Date: 20111020
  Transmission Date: 20120403
  Serious: Yes (Hospitalization, Other)
  Sender: FDA-Public Use
  Company Number: US-ELI_LILLY_AND_COMPANY-US201110005923

PATIENT
  Age: 66 Year
  Sex: Female

DRUGS (9)
  1. AMLODIPINE [Concomitant]
     Dosage: 10 MG, QD
  2. PLAVIX [Concomitant]
     Dosage: 75 MG, QD
  3. ATENOLOL [Concomitant]
     Dosage: 50 MG, EACH MORNING
  4. CITALOPRAM HYDROBROMIDE [Concomitant]
     Dosage: 40 MG, 1.5 TABLETS QD
  5. TORSEMIDE [Concomitant]
     Dosage: 20 MG, UNK
  6. EFFIENT [Suspect]
     Indication: STENT PLACEMENT
     Dosage: 10 MG, QD
     Dates: start: 20110401
  7. ATENOLOL [Concomitant]
     Dosage: 25 MG, EACH EVENING
  8. POTASSIUM CHLORIDE [Concomitant]
     Dosage: 20 MEQ, QD
  9. NITROSTAT [Concomitant]
     Dosage: 0.4 MG, UNK

REACTIONS (4)
  - FAECES DISCOLOURED [None]
  - GASTRIC ULCER HAEMORRHAGE [None]
  - INCORRECT STORAGE OF DRUG [None]
  - FEELING ABNORMAL [None]
